FAERS Safety Report 9505782 (Version 1)
Quarter: 2013Q1

REPORT INFORMATION
  Report Type: Spontaneous
  Country: US (occurrence: None)
  Receive Date: 20130220
  Receipt Date: 20130220
  Transmission Date: 20140127
  Serious: No
  Sender: FDA-Public Use
  Company Number: 1000040008

PATIENT
  Age: 34 Year
  Sex: Female

DRUGS (3)
  1. VIIBRYD [Suspect]
     Indication: ANXIETY
     Route: 048
     Dates: start: 20120928, end: 20121004
  2. VIIBRYD [Suspect]
     Indication: ANXIETY
     Route: 048
     Dates: start: 20121012, end: 20121023
  3. CYCLODENZAPRINE (CYCLOBENZAPRINE) (CYCLOBENZAPRINE) [Concomitant]

REACTIONS (3)
  - Paraesthesia [None]
  - Hallucination [None]
  - Off label use [None]
